FAERS Safety Report 21811531 (Version 5)
Quarter: 2024Q2

REPORT INFORMATION
  Report Type: Report from Study
  Country: IE (occurrence: IE)
  Receive Date: 20230103
  Receipt Date: 20240403
  Transmission Date: 20240716
  Serious: Yes (Other)
  Sender: FDA-Public Use
  Company Number: IE-DSJP-DSU-2022-145293

PATIENT
  Age: 46 Year
  Sex: Female
  Weight: 63.4 kg

DRUGS (3)
  1. ENHERTU [Interacting]
     Active Substance: FAM-TRASTUZUMAB DERUXTECAN-NXKI
     Indication: HER2 positive breast cancer
     Dosage: 320 MG, ONCE EVERY 3 WK
     Route: 042
     Dates: start: 20220504, end: 20221118
  2. ENHERTU [Interacting]
     Active Substance: FAM-TRASTUZUMAB DERUXTECAN-NXKI
     Dosage: 340 MG, ONCE EVERY 3 WK
     Route: 042
     Dates: start: 2022, end: 20221209
  3. CALCIUM\VITAMIN D [Concomitant]
     Active Substance: CALCIUM\VITAMIN D
     Indication: Bone disorder
     Dosage: UNK, BID
     Route: 048
     Dates: start: 20170630

REACTIONS (2)
  - Pulmonary function test decreased [Unknown]
  - Interstitial lung disease [Recovering/Resolving]

NARRATIVE: CASE EVENT DATE: 20221209
